FAERS Safety Report 5593077-1 (Version None)
Quarter: 2008Q1

REPORT INFORMATION
  Report Type: 
  Country: None (occurrence: None)
  Receive Date: 20080116
  Receipt Date: 20080116
  Transmission Date: 20080703
  Serious: Yes (Death, Other)
  Sender: FDA-Public Use
  Company Number: US-GENENTECH-253060

PATIENT
  Sex: Female
  Weight: 82.54 kg

DRUGS (3)
  1. AVASTIN [Suspect]
     Indication: NON-SMALL CELL LUNG CANCER
     Dosage: 10 MG/KG, Q2W
     Route: 042
     Dates: start: 20070717
  2. GEMZAR [Concomitant]
     Indication: NON-SMALL CELL LUNG CANCER
  3. TAXOTERE [Concomitant]
     Indication: NON-SMALL CELL LUNG CANCER

REACTIONS (1)
  - PNEUMOTHORAX [None]
